FAERS Safety Report 24211721 (Version 2)
Quarter: 2024Q3

REPORT INFORMATION
  Report Type: Spontaneous
  Country: GE (occurrence: GE)
  Receive Date: 20240814
  Receipt Date: 20240821
  Transmission Date: 20241017
  Serious: Yes (Life-Threatening, Hospitalization)
  Sender: PURDUE
  Company Number: GE-MLMSERVICE-20240807-PI153008-00229-1

PATIENT
  Age: 50 Year
  Sex: Male

DRUGS (2)
  1. MORPHINE SULFATE [Suspect]
     Active Substance: MORPHINE SULFATE
     Indication: Product used for unknown indication
     Dosage: UNK
     Route: 065
  2. MORPHINE SULFATE [Suspect]
     Active Substance: MORPHINE SULFATE
     Indication: Product used for unknown indication
     Dosage: UNK
     Route: 065

REACTIONS (9)
  - Unresponsive to stimuli [Recovering/Resolving]
  - Hypotonia [Recovering/Resolving]
  - Dehydration [Recovering/Resolving]
  - Pneumonia aspiration [Recovering/Resolving]
  - Cyanosis [Recovering/Resolving]
  - Skin lesion [Recovering/Resolving]
  - Cardiac murmur [Recovering/Resolving]
  - Injection site abscess [Recovering/Resolving]
  - Overdose [Recovering/Resolving]
